FAERS Safety Report 17110970 (Version 2)
Quarter: 2019Q4

REPORT INFORMATION
  Report Type: Spontaneous
  Country: US (occurrence: US)
  Receive Date: 20191204
  Receipt Date: 20191209
  Transmission Date: 20200122
  Serious: No
  Sender: FDA-Public Use
  Company Number: US-PFIZER INC-2019520951

PATIENT
  Age: 70 Year
  Sex: Female
  Weight: 74.83 kg

DRUGS (1)
  1. METHYLPREDNISOLONE. [Suspect]
     Active Substance: METHYLPREDNISOLONE
     Indication: TENDONITIS
     Dosage: 4 MG, DAILY (TAKE GRADUATED DOSE 6-5-4-3-2-1 DAILY BY MOUTH)
     Route: 048
     Dates: start: 20191016, end: 201910

REACTIONS (6)
  - Pruritus [Not Recovered/Not Resolved]
  - Rash [Not Recovered/Not Resolved]
  - Off label use [Unknown]
  - Product use in unapproved indication [Unknown]
  - Gait disturbance [Unknown]
  - Perioral dermatitis [Not Recovered/Not Resolved]

NARRATIVE: CASE EVENT DATE: 20191020
